FAERS Safety Report 7728744-4 (Version None)
Quarter: 2011Q3

REPORT INFORMATION
  Report Type: 
  Country: None (occurrence: None)
  Receive Date: 20110831
  Receipt Date: 20110831
  Transmission Date: 20111222
  Serious: Yes (Hospitalization)
  Sender: FDA-Public Use
  Company Number: None

PATIENT
  Age: 93 Year
  Sex: Male
  Weight: 94.1 kg

DRUGS (1)
  1. WARFARIN SODIUM [Suspect]
     Dosage: 2.5 MG EVERY DAY PO
     Route: 048
     Dates: start: 20100121, end: 20110406

REACTIONS (6)
  - ASTHENIA [None]
  - INTERNATIONAL NORMALISED RATIO INCREASED [None]
  - GASTROINTESTINAL VASCULAR MALFORMATION [None]
  - HAEMORRHAGIC ARTERIOVENOUS MALFORMATION [None]
  - ANAEMIA [None]
  - HAEMORRHAGE [None]
